FAERS Safety Report 4639192-8 (Version None)
Quarter: 2005Q2

REPORT INFORMATION
  Report Type: 
  Country: None (occurrence: None)
  Receive Date: 20050418
  Receipt Date: 20050413
  Transmission Date: 20051028
  Serious: Yes (Life-Threatening)
  Sender: FDA-Public Use
  Company Number: 2005AP02238

PATIENT
  Age: 82 Year
  Sex: Male

DRUGS (6)
  1. CASODEX [Suspect]
     Indication: PROSTATE CANCER
     Dosage: 80 MG DAILY PO
     Route: 048
     Dates: end: 20050409
  2. LEUPLIN [Suspect]
     Dosage: 3.75 MG Q4WK SQ
  3. ALFAROL [Concomitant]
  4. MARZULENE [Concomitant]
  5. GASTER D [Concomitant]
  6. EPOGEN [Concomitant]

REACTIONS (1)
  - PANCYTOPENIA [None]
